FAERS Safety Report 7344541-6 (Version None)
Quarter: 2011Q1

REPORT INFORMATION
  Report Type: 
  Country: None (occurrence: None)
  Receive Date: 20110310
  Receipt Date: 20110301
  Transmission Date: 20110831
  Serious: Yes (Hospitalization, Other)
  Sender: FDA-Public Use
  Company Number: US-JNJFOC-20101104624

PATIENT
  Sex: Female
  Weight: 51.26 kg

DRUGS (8)
  1. INFLIXIMAB, RECOMBINANT [Suspect]
     Route: 042
  2. ANTIHISTAMINES [Concomitant]
  3. AZATHIOPRINE [Concomitant]
  4. ACETAMINOPHEN [Concomitant]
  5. INFLIXIMAB, RECOMBINANT [Suspect]
     Route: 042
  6. ANTIHISTAMINES [Concomitant]
     Indication: PREMEDICATION
  7. ACETAMINOPHEN [Concomitant]
     Indication: PREMEDICATION
  8. INFLIXIMAB, RECOMBINANT [Suspect]
     Indication: CROHN'S DISEASE
     Route: 042

REACTIONS (4)
  - PREMATURE LABOUR [None]
  - PREMATURE RUPTURE OF MEMBRANES [None]
  - DRUG EXPOSURE DURING PREGNANCY [None]
  - PRE-ECLAMPSIA [None]
